FAERS Safety Report 9995124 (Version 1)
Quarter: 2014Q1

REPORT INFORMATION
  Report Type: Spontaneous
  Country: JP (occurrence: None)
  Receive Date: 20140307
  Receipt Date: 20140307
  Transmission Date: 20141002
  Serious: Yes (Other)
  Sender: FDA-Public Use
  Company Number: SYM-2014-17963

PATIENT
  Age: 64 Year
  Sex: Male

DRUGS (3)
  1. DIAZEPAM (DIAZEPAM) (DIAZEPAM) [Suspect]
     Indication: POSTOPERATIVE CARE
  2. BUPRENORPHINE [Suspect]
     Indication: POSTOPERATIVE CARE
  3. FLUNITRAZEPAM [Suspect]
     Indication: POSTOPERATIVE CARE

REACTIONS (6)
  - Neuroleptic malignant syndrome [None]
  - Hyperthermia [None]
  - Muscle rigidity [None]
  - Coma [None]
  - Delirium [None]
  - Blood creatine phosphokinase increased [None]
